FAERS Safety Report 8787692 (Version 1)
Quarter: 2012Q4

REPORT INFORMATION
  Report Type: 
  Country: US (occurrence: US)
  Receive Date: 20120914
  Receipt Date: 20120914
  Transmission Date: 20130627
  Serious: No
  Sender: FDA-Public Use
  Company Number: US-VERTEX PHARMACEUTICAL INC.-AE-2012-009459

PATIENT
  Age: 53 Year
  Sex: Female
  Weight: 118.18 kg

DRUGS (5)
  1. INCIVEK [Suspect]
     Indication: HEPATITIS C
     Route: 048
     Dates: start: 20120616
  2. COPEGUS [Concomitant]
     Indication: HEPATITIS C
     Route: 048
     Dates: start: 20120616
  3. PEGASYS [Concomitant]
     Indication: HEPATITIS C
     Dates: start: 20120616
  4. ABILIFY [Concomitant]
     Indication: BIPOLAR DISORDER
  5. ZOLOFT [Concomitant]
     Indication: BIPOLAR DISORDER

REACTIONS (2)
  - Rash [Not Recovered/Not Resolved]
  - Pruritus [Not Recovered/Not Resolved]
